FAERS Safety Report 24443599 (Version 2)
Quarter: 2024Q4

REPORT INFORMATION
  Report Type: Report from Study
  Country: DE (occurrence: DE)
  Receive Date: 20241016
  Receipt Date: 20241017
  Transmission Date: 20250114
  Serious: No
  Sender: ROCHE
  Company Number: DE-ROCHE-1122771

PATIENT
  Age: 24 Year
  Sex: Female
  Weight: 70.0 kg

DRUGS (47)
  1. RITUXIMAB [Suspect]
     Active Substance: RITUXIMAB
     Indication: Systemic lupus erythematosus
     Dosage: LAST DOSE /DEC/2011: PRE OR PERICONCEPTIONAL
     Route: 042
     Dates: end: 201112
  2. EZETIMIBE\SIMVASTATIN [Suspect]
     Active Substance: EZETIMIBE\SIMVASTATIN
     Indication: Hypercholesterolaemia
     Dosage: 40/10 MG PER DAY, FROM GESTATIONAL WEEK 0-14
     Route: 048
     Dates: start: 20111214, end: 20120320
  3. EZETIMIBE\SIMVASTATIN [Suspect]
     Active Substance: EZETIMIBE\SIMVASTATIN
     Dosage: FROM GESTATIONAL WEEK 0-14
     Route: 048
  4. ALISKIREN [Suspect]
     Active Substance: ALISKIREN
     Indication: Systemic lupus erythematosus
     Route: 048
  5. ALISKIREN [Suspect]
     Active Substance: ALISKIREN
     Dosage: 0-4.6 GESTATIONAL WEEK, MOST RECENT DOSE RECEIVED ON 17/JAN/2012
     Route: 065
     Dates: start: 20111214, end: 20120117
  6. XARELTO [Suspect]
     Active Substance: RIVAROXABAN
     Indication: Vena cava thrombosis
     Dosage: FROM GESTATIONAL WEEK 0-5
     Route: 048
  7. XARELTO [Suspect]
     Active Substance: RIVAROXABAN
     Dosage: FROM GESTATIONAL WEEK 0-5
     Route: 065
  8. ALBUTEROL SULFATE [Suspect]
     Active Substance: ALBUTEROL SULFATE
     Indication: Product used for unknown indication
     Route: 065
  9. HYDROXYCHLOROQUINE [Suspect]
     Active Substance: HYDROXYCHLOROQUINE
     Indication: Systemic lupus erythematosus
     Dosage: FROM GESTATIONAL WEEK 0-14
     Route: 048
     Dates: start: 20111214, end: 20120320
  10. HYDROXYCHLOROQUINE [Suspect]
     Active Substance: HYDROXYCHLOROQUINE
     Route: 065
  11. ALBUTEROL [Suspect]
     Active Substance: ALBUTEROL
     Indication: Asthma
     Dosage: FROM GESTATIONAL WEEK 0-14
     Route: 055
  12. ALBUTEROL [Suspect]
     Active Substance: ALBUTEROL
     Dosage: FROM GESTATIONAL WEEK 0-14
     Route: 065
  13. METAMIZOLE [Suspect]
     Active Substance: METAMIZOLE
     Indication: Pain
     Dosage: UNK; TRIMESTER: FIRST; PROBABLY ONLY IN HOSPITAL IN WEEK 5
     Route: 065
  14. METAMIZOLE [Suspect]
     Active Substance: METAMIZOLE
     Dosage: UNK; TRIMESTER: FIRST; PROBABLY ONLY IN HOSPITAL IN WEEK 5?FROM GESTATIONAL WEEK 0-14
     Route: 065
  15. PREDNISOLONE [Suspect]
     Active Substance: PREDNISOLONE
     Indication: Product used for unknown indication
     Dosage: FROM GESTATIONAL WEEK 0-14
     Route: 065
  16. PREDNISOLONE [Suspect]
     Active Substance: PREDNISOLONE
     Dosage: FROM GESTATIONAL WEEK 0-14
     Route: 065
     Dates: start: 20111214, end: 20120320
  17. PREDNISOLONE [Suspect]
     Active Substance: PREDNISOLONE
     Route: 065
  18. PREDNISOLONE [Suspect]
     Active Substance: PREDNISOLONE
     Dosage: FROM GESTATIONAL WEEK 0-14
     Route: 065
  19. ASPIRIN [Suspect]
     Active Substance: ASPIRIN
     Indication: Vena cava thrombosis
     Dosage: FROM GESTATIONAL WEEK 0-14
     Route: 048
     Dates: start: 20111214, end: 20120320
  20. TORSEMIDE [Suspect]
     Active Substance: TORSEMIDE
     Indication: Nephrotic syndrome
     Route: 048
     Dates: start: 20111214, end: 20120320
  21. TORSEMIDE [Suspect]
     Active Substance: TORSEMIDE
     Indication: Glomerulonephritis membranous
     Dosage: FROM GESTATIONAL WEEK 0-14
     Route: 065
  22. TORSEMIDE [Suspect]
     Active Substance: TORSEMIDE
     Dosage: FROM GESTATIONAL WEEK 0-14
     Route: 065
  23. DALTEPARIN SODIUM [Suspect]
     Active Substance: DALTEPARIN SODIUM
     Indication: Product used for unknown indication
     Route: 065
  24. ENOXAPARIN SODIUM [Suspect]
     Active Substance: ENOXAPARIN SODIUM
     Indication: Pulmonary embolism
     Dosage: 200 MG/D (2X100)
     Route: 065
     Dates: start: 20111214, end: 20120320
  25. ENOXAPARIN SODIUM [Suspect]
     Active Substance: ENOXAPARIN SODIUM
     Route: 065
  26. ENOXAPARIN SODIUM [Suspect]
     Active Substance: ENOXAPARIN SODIUM
     Route: 065
  27. METAMIZOLE [Suspect]
     Active Substance: METAMIZOLE
     Indication: Product used for unknown indication
     Dosage: FROM GESTATIONAL WEEK 0-14
     Route: 065
  28. METAMIZOLE SODIUM [Suspect]
     Active Substance: METAMIZOLE SODIUM
     Indication: Product used for unknown indication
     Dosage: FROM GESTATIONAL WEEK 0-14
     Route: 065
  29. HYDROXYCHLOROQUINE [Suspect]
     Active Substance: HYDROXYCHLOROQUINE
     Indication: Product used for unknown indication
     Route: 065
  30. HYDROXYCHLOROQUINE [Suspect]
     Active Substance: HYDROXYCHLOROQUINE
     Dosage: FROM GESTATIONAL WEEK 0-14
     Route: 065
     Dates: end: 20120320
  31. HYDROXYCHLOROQUINE [Suspect]
     Active Substance: HYDROXYCHLOROQUINE
     Dosage: FROM GESTATIONAL WEEK 0-14
     Route: 065
     Dates: start: 20111214, end: 20120320
  32. ENOXAPARIN SODIUM [Suspect]
     Active Substance: ENOXAPARIN SODIUM
     Indication: Product used for unknown indication
     Dosage: FROM GESTATIONAL WEEK 0-14
     Route: 065
  33. NICOTINE [Suspect]
     Active Substance: NICOTINE
     Indication: Product used for unknown indication
     Dosage: FROM GESTATIONAL WEEK 0-14
     Route: 065
  34. UNSPECIFIED INGREDIENT [Suspect]
     Active Substance: UNSPECIFIED INGREDIENT
     Indication: Product used for unknown indication
     Route: 065
  35. PANTOPRAZOLE [Suspect]
     Active Substance: PANTOPRAZOLE
     Indication: Product used for unknown indication
     Dosage: FROM GESTATIONAL WEEK 0-14
     Route: 065
  36. RAMIPRIL [Suspect]
     Active Substance: RAMIPRIL
     Indication: Nephrotic syndrome
     Route: 048
     Dates: start: 20111214, end: 20120320
  37. RAMIPRIL [Suspect]
     Active Substance: RAMIPRIL
     Indication: Glomerulonephritis membranous
     Dosage: 20 MG UNK FROM GESTATIONAL WEEK 0-113+6
     Route: 065
  38. RAMIPRIL [Suspect]
     Active Substance: RAMIPRIL
     Dosage: 20 MG, QD FROM GESTATIONAL WEEK 0-113+6
     Route: 065
  39. TACROLIMUS [Suspect]
     Active Substance: TACROLIMUS
     Indication: Systemic lupus erythematosus
     Route: 048
     Dates: start: 20111214, end: 20120320
  40. TACROLIMUS [Suspect]
     Active Substance: TACROLIMUS
     Indication: Embolism venous
     Dosage: FROM GESTATIONAL WEEK 0-14
     Route: 065
  41. MIFEPRISTONE [Concomitant]
     Active Substance: MIFEPRISTONE
     Indication: Abortion induced
     Route: 048
     Dates: start: 20120320, end: 20120320
  42. CYTOTEC [Concomitant]
     Active Substance: MISOPROSTOL
     Indication: Abortion induced
     Route: 048
     Dates: start: 20120320, end: 20120320
  43. CYCLOPHOSPHAMIDE [Concomitant]
     Active Substance: CYCLOPHOSPHAMIDE
     Indication: Systemic lupus erythematosus
     Route: 042
     Dates: start: 201104, end: 201108
  44. PREDNISOLONE [Concomitant]
     Active Substance: PREDNISOLONE
     Indication: Systemic lupus erythematosus
     Route: 048
     Dates: start: 20111214, end: 20120320
  45. PANTOZOL [Concomitant]
     Active Substance: PANTOPRAZOLE SODIUM
     Indication: Gastritis prophylaxis
     Route: 048
     Dates: start: 20111214, end: 20120320
  46. RASILEZ [Concomitant]
     Active Substance: ALISKIREN
     Indication: Hypertension
     Route: 048
     Dates: start: 20111214, end: 20120117
  47. ALBUTEROL [Concomitant]
     Active Substance: ALBUTEROL
     Indication: Asthma
     Dosage: IF REQUIRED? FREQUENCY TEXT:PRN
     Route: 055

REACTIONS (1)
  - Maternal exposure before pregnancy [Unknown]
